FAERS Safety Report 5424109-9 (Version None)
Quarter: 2007Q3

REPORT INFORMATION
  Report Type: 
  Country: None (occurrence: None)
  Receive Date: 20070823
  Receipt Date: 20070813
  Transmission Date: 20080115
  Serious: Yes (Other)
  Sender: FDA-Public Use
  Company Number: US-PFIZER INC-2007068692

PATIENT
  Sex: Female
  Weight: 81.8 kg

DRUGS (1)
  1. CHANTIX [Suspect]
     Indication: SMOKING CESSATION THERAPY
     Dosage: TEXT:0.5MG
     Dates: start: 20070806, end: 20070810

REACTIONS (3)
  - ABASIA [None]
  - DECREASED ACTIVITY [None]
  - MUSCLE SPASMS [None]
